FAERS Safety Report 25186811 (Version 3)
Quarter: 2025Q2

REPORT INFORMATION
  Report Type: Other
  Country: US (occurrence: US)
  Receive Date: 20250411
  Receipt Date: 20250618
  Transmission Date: 20250717
  Serious: Yes (Hospitalization)
  Sender: INTERCEPT PHARMACEUTICALS
  Company Number: US-INTERCEPT-PM2025000749

PATIENT
  Sex: Female

DRUGS (12)
  1. OCALIVA [Suspect]
     Active Substance: OBETICHOLIC ACID
     Indication: Primary biliary cholangitis
     Dosage: 5 MILLIGRAM, QD
     Route: 048
     Dates: start: 20170315, end: 2017
  2. OCALIVA [Suspect]
     Active Substance: OBETICHOLIC ACID
     Dosage: 10 MILLIGRAM, QD
     Route: 048
     Dates: start: 201707, end: 20241231
  3. URSODIOL [Concomitant]
     Active Substance: URSODIOL
  4. BENLYSTA [Concomitant]
     Active Substance: BELIMUMAB
  5. AZATHIOPRINE [Concomitant]
     Active Substance: AZATHIOPRINE
  6. HYDROXYCHLOROQUINE [Concomitant]
     Active Substance: HYDROXYCHLOROQUINE
  7. METHOCARBAMOL [Concomitant]
     Active Substance: METHOCARBAMOL
  8. MYCOPHENOLATE MOFETIL [Concomitant]
     Active Substance: MYCOPHENOLATE MOFETIL
  9. PREDNISONE [Concomitant]
     Active Substance: PREDNISONE
     Route: 065
  10. PREDNISONE [Concomitant]
     Active Substance: PREDNISONE
     Route: 065
  11. Triamcinolon [Concomitant]
  12. VALACYCLOVIR [Concomitant]
     Active Substance: VALACYCLOVIR HYDROCHLORIDE

REACTIONS (3)
  - Fluid retention [Unknown]
  - Varices oesophageal [Unknown]
  - Drainage [Recovered/Resolved]
